FAERS Safety Report 12047102 (Version 1)
Quarter: 2016Q1

REPORT INFORMATION
  Report Type: Report from Study
  Country: US (occurrence: US)
  Receive Date: 20160209
  Receipt Date: 20160209
  Transmission Date: 20160526
  Serious: No
  Sender: FDA-Public Use
  Company Number: US-009507513-1601USA010510

PATIENT

DRUGS (3)
  1. RIBAVIRIN. [Suspect]
     Active Substance: RIBAVIRIN
     Indication: CHRONIC HEPATITIS C
     Dosage: UNK
  2. BOCEPREVIR [Suspect]
     Active Substance: BOCEPREVIR
     Indication: CHRONIC HEPATITIS C
     Dosage: UNK
  3. PEGINTERFERON ALFA-2A [Suspect]
     Active Substance: PEGINTERFERON ALFA-2A
     Dosage: UNK

REACTIONS (21)
  - Hypoaesthesia [Recovered/Resolved]
  - Chills [Recovered/Resolved with Sequelae]
  - Diarrhoea [Recovered/Resolved]
  - Leukopenia [Not Recovered/Not Resolved]
  - Abdominal pain [Recovered/Resolved]
  - Decreased appetite [Not Recovered/Not Resolved]
  - Influenza like illness [Recovered/Resolved]
  - Disturbance in attention [Recovered/Resolved]
  - Diarrhoea [Recovered/Resolved]
  - Anxiety [Recovered/Resolved]
  - Dyspnoea [Recovered/Resolved]
  - Fatigue [Recovered/Resolved]
  - Neutropenia [Not Recovered/Not Resolved]
  - Nausea [Recovered/Resolved]
  - Dry skin [Recovered/Resolved]
  - Rash [Not Recovered/Not Resolved]
  - Cough [Recovered/Resolved]
  - Irritability [Recovered/Resolved]
  - Anaemia [Recovered/Resolved]
  - Cough [Recovered/Resolved]
  - Nausea [Recovered/Resolved]

NARRATIVE: CASE EVENT DATE: 20130123
